FAERS Safety Report 23417935 (Version 1)
Quarter: 2024Q1

REPORT INFORMATION
  Report Type: Spontaneous
  Country: US (occurrence: US)
  Receive Date: 20240118
  Receipt Date: 20240118
  Transmission Date: 20240409
  Serious: No
  Sender: FDA-Public Use
  Company Number: ENDG23-05093

PATIENT
  Sex: Female

DRUGS (2)
  1. PERCOCET [Suspect]
     Active Substance: ACETAMINOPHEN\OXYCODONE HYDROCHLORIDE
     Indication: Psoriatic arthropathy
     Dosage: UNK UNKNOWN, UNKNOWN
     Route: 065
  2. PERCOCET [Suspect]
     Active Substance: ACETAMINOPHEN\OXYCODONE HYDROCHLORIDE
     Indication: Spondylitis

REACTIONS (6)
  - Throat irritation [Unknown]
  - Chest pain [Unknown]
  - Nasal discomfort [Unknown]
  - Drug ineffective [Unknown]
  - Product physical issue [Unknown]
  - Product colour issue [Unknown]
